FAERS Safety Report 4649350-4 (Version None)
Quarter: 2005Q2

REPORT INFORMATION
  Report Type: 
  Country: None (occurrence: None)
  Receive Date: 20050429
  Receipt Date: 20050420
  Transmission Date: 20051028
  Serious: Yes (Other)
  Sender: FDA-Public Use
  Company Number: AU-ABBOTT-05P-008-0298032-00

PATIENT
  Age: 66 Year
  Sex: Male

DRUGS (8)
  1. RITONAVIR [Suspect]
     Indication: HIV INFECTION
     Route: 048
  2. FLUTICASONE PROPIONATE [Interacting]
     Indication: ASTHMA
     Route: 055
  3. SALMETEROL [Concomitant]
     Indication: ASTHMA
     Route: 055
  4. DIDANOSINE [Concomitant]
     Indication: ANTIVIRAL PROPHYLAXIS
     Dosage: NOT REPORTED
  5. STAVUDINE [Concomitant]
     Indication: ANTIVIRAL PROPHYLAXIS
     Dosage: NOT REPORTED
  6. AMPRENAVIR [Concomitant]
     Indication: ANTIVIRAL PROPHYLAXIS
     Dosage: NOT REPORTED
  7. ABACAVIR [Concomitant]
     Indication: ANTIVIRAL PROPHYLAXIS
     Dosage: NOT REPORTED
  8. BUDESONIDE/EFOMOTEROL [Concomitant]
     Indication: ASTHMA
     Dosage: 400/12 MCG
     Route: 055

REACTIONS (6)
  - ASEPTIC NECROSIS BONE [None]
  - CUSHINGOID [None]
  - DRUG INTERACTION [None]
  - FEMORAL NECK FRACTURE [None]
  - GLUCOCORTICOIDS INCREASED [None]
  - ORAL CANDIDIASIS [None]
